FAERS Safety Report 7213611-5 (Version None)
Quarter: 2011Q1

REPORT INFORMATION
  Report Type: 
  Country: None (occurrence: None)
  Receive Date: 20110106
  Receipt Date: 20101227
  Transmission Date: 20110831
  Serious: Yes (Hospitalization)
  Sender: FDA-Public Use
  Company Number: NL-MEDIMMUNE-MEDI-0012122

PATIENT
  Sex: Male
  Weight: 6.92 kg

DRUGS (3)
  1. SYNAGIS [Suspect]
     Route: 030
     Dates: start: 20100902, end: 20101126
  2. SYNAGIS [Suspect]
     Route: 030
     Dates: start: 20101224, end: 20101224
  3. BACTRIM [Concomitant]
     Dates: start: 20100101

REACTIONS (1)
  - HYPOVENTILATION [None]
